FAERS Safety Report 10763335 (Version 1)
Quarter: 2015Q1

REPORT INFORMATION
  Report Type: Spontaneous
  Country: US (occurrence: None)
  Receive Date: 20150129
  Receipt Date: 20150129
  Transmission Date: 20150721
  Serious: Yes (Other)
  Sender: FDA-Public Use
  Company Number: 2014014774

PATIENT

DRUGS (2)
  1. KEPPRA XR [Suspect]
     Active Substance: LEVETIRACETAM
     Indication: GENERALISED TONIC-CLONIC SEIZURE
  2. DILANTIN (PHENYTOIN SODIUM) [Concomitant]
     Active Substance: PHENYTOIN SODIUM

REACTIONS (4)
  - Generalised tonic-clonic seizure [None]
  - Amnesia [None]
  - Drug ineffective [None]
  - Tremor [None]

NARRATIVE: CASE EVENT DATE: 2014
